FAERS Safety Report 14571547 (Version 1)
Quarter: 2018Q1

REPORT INFORMATION
  Report Type: Spontaneous
  Country: US (occurrence: US)
  Receive Date: 20180226
  Receipt Date: 20180226
  Transmission Date: 20180509
  Serious: No
  Sender: FDA-Public Use
  Company Number: US-LUPIN PHARMACEUTICALS INC.-2017-03833

PATIENT
  Sex: Female
  Weight: 76.2 kg

DRUGS (6)
  1. SYNTHROID [Concomitant]
     Active Substance: LEVOTHYROXINE SODIUM
     Indication: THYROID DISORDER
     Dosage: 0.75 MG, QD
  2. TELMISARTAN AND AMLODIPINE TABLETS 80 MG/5 MG [Suspect]
     Active Substance: AMLODIPINE BESYLATE\TELMISARTAN
     Indication: BLOOD PRESSURE MEASUREMENT
     Dosage: HALF OF TABLET EVERY DAY
     Route: 065
     Dates: start: 201512
  3. CENTRUM SILVER +50 [Concomitant]
     Indication: FATIGUE
     Dosage: 1 DF, QD
  4. CENTRUM SILVER +50 [Concomitant]
     Indication: ASTHENIA
  5. VITAMIN D3 [Concomitant]
     Active Substance: CHOLECALCIFEROL
     Indication: SUPPLEMENTATION THERAPY
     Dosage: 5000 UNIT, QD
  6. VITAMIN D3 [Concomitant]
     Active Substance: CHOLECALCIFEROL
     Indication: FATIGUE

REACTIONS (2)
  - Wrong technique in product usage process [Unknown]
  - Hypotension [Unknown]
